FAERS Safety Report 11046628 (Version 2)
Quarter: 2015Q2

REPORT INFORMATION
  Report Type: Report from Study
  Country: DE (occurrence: DE)
  Receive Date: 20150420
  Receipt Date: 20150428
  Transmission Date: 20150821
  Serious: Yes (Life-Threatening, Hospitalization, Disabling)
  Sender: FDA-Public Use
  Company Number: DE-ROCHE-1565584

PATIENT
  Age: 56 Year
  Sex: Female
  Weight: 88 kg

DRUGS (5)
  1. PERTUZUMAB [Suspect]
     Active Substance: PERTUZUMAB
     Indication: BREAST CANCER
     Dosage: MOST RECENT DOSE PRIOR TO SAE: 25/MAR/2015
     Route: 042
     Dates: start: 20150211
  2. PACLITAXEL. [Suspect]
     Active Substance: PACLITAXEL
     Indication: BREAST CANCER
     Dosage: MOST RECENT DOSE PRIOR TO SAE: 08/APR/2015
     Route: 042
     Dates: start: 20150211
  3. LIPOSOMAL DOXORUBICIN [Suspect]
     Active Substance: DOXORUBICIN HYDROCHLORIDE
     Indication: BREAST CANCER
     Dosage: MOST RECENT DOSE PRIOR TO SAE: 08/APR/2015
     Route: 042
     Dates: start: 20150211
  4. ERYPO [Concomitant]
     Route: 065
     Dates: start: 20150402, end: 20150409
  5. TRASTUZUMAB [Suspect]
     Active Substance: TRASTUZUMAB
     Indication: BREAST CANCER
     Dosage: MOST RECENT DOSE PRIOR TO SAE: 25/MAR/2015
     Route: 042
     Dates: start: 20150211

REACTIONS (1)
  - Cerebrovascular accident [Unknown]

NARRATIVE: CASE EVENT DATE: 20150411
